FAERS Safety Report 4446200-6 (Version None)
Quarter: 2004Q3

REPORT INFORMATION
  Report Type: 
  Country: None (occurrence: None)
  Receive Date: 20040907
  Receipt Date: 20040819
  Transmission Date: 20050211
  Serious: Yes (Hospitalization)
  Sender: FDA-Public Use
  Company Number: SP00335

PATIENT
  Age: 54 Year
  Sex: Male

DRUGS (1)
  1. COLAZAL [Suspect]
     Dosage: 750 MG/ TID, ORAL
     Route: 048
     Dates: start: 20040701, end: 20040817

REACTIONS (1)
  - THROMBOCYTOPENIA [None]
